FAERS Safety Report 19972170 (Version 1)
Quarter: 2021Q4

REPORT INFORMATION
  Report Type: Spontaneous
  Country: US (occurrence: US)
  Receive Date: 20211019
  Receipt Date: 20211019
  Transmission Date: 20220303
  Serious: Yes (Other)
  Sender: FDA-Public Use
  Company Number: US-ELI_LILLY_AND_COMPANY-US202110006120

PATIENT
  Age: 91 Year
  Sex: Male

DRUGS (1)
  1. BAMLANIVIMAB [Suspect]
     Active Substance: BAMLANIVIMAB
     Indication: COVID-19
     Dosage: 700 MG, SINGLE
     Route: 042

REACTIONS (7)
  - Generalised tonic-clonic seizure [Unknown]
  - Oxygen saturation decreased [Recovered/Resolved]
  - Pneumonia [Unknown]
  - Pulmonary oedema [Unknown]
  - Confusional state [Recovered/Resolved]
  - Agitation [Recovered/Resolved]
  - Postictal state [Unknown]
